FAERS Safety Report 4298494-8 (Version None)
Quarter: 2004Q1

REPORT INFORMATION
  Report Type: 
  Country: None (occurrence: None)
  Receive Date: 20040218
  Receipt Date: 20031121
  Transmission Date: 20041129
  Serious: Yes (Other)
  Sender: FDA-Public Use
  Company Number: US-BRISTOL-MYERS SQUIBB COMPANY-12441598

PATIENT
  Age: 29 Year
  Sex: Female

DRUGS (8)
  1. STADOL [Suspect]
     Route: 045
     Dates: start: 19950707, end: 19980418
  2. IBUPROFEN [Concomitant]
  3. ACETAMINOPHEN W/ CODEINE [Concomitant]
  4. HYDROCODONE + ACETAMINOPHEN [Concomitant]
  5. CYCLOBENZAPRINE [Concomitant]
  6. ULTRAM [Concomitant]
  7. LIPITOR [Concomitant]
  8. PROPOXYPHENE HCL [Concomitant]

REACTIONS (1)
  - DEPENDENCE [None]
